FAERS Safety Report 11524249 (Version 1)
Quarter: 2015Q3

REPORT INFORMATION
  Report Type: Spontaneous
  Country: US (occurrence: US)
  Receive Date: 20150918
  Receipt Date: 20150918
  Transmission Date: 20151125
  Serious: No
  Sender: FDA-Public Use
  Company Number: US-ROCHE-717827

PATIENT
  Age: 37 Year
  Sex: Male

DRUGS (2)
  1. RIBAVIRIN. [Suspect]
     Active Substance: RIBAVIRIN
     Indication: HEPATITIS C
     Route: 065
     Dates: start: 20100226, end: 20100720
  2. PEGASYS [Suspect]
     Active Substance: PEGINTERFERON ALFA-2A
     Indication: HEPATITIS C
     Route: 065
     Dates: start: 20100226, end: 20100720

REACTIONS (8)
  - Oropharyngeal pain [Unknown]
  - Stress at work [Unknown]
  - Dehydration [Not Recovered/Not Resolved]
  - Drug ineffective [Unknown]
  - Pyrexia [Not Recovered/Not Resolved]
  - Ear pain [Unknown]
  - Tremor [Recovered/Resolved]
  - Loss of consciousness [Unknown]

NARRATIVE: CASE EVENT DATE: 20100723
